FAERS Safety Report 19927973 (Version 1)
Quarter: 2021Q4

REPORT INFORMATION
  Report Type: Spontaneous
  Country: US (occurrence: US)
  Receive Date: 20211006
  Receipt Date: 20211006
  Transmission Date: 20220303
  Serious: Yes (Disabling)
  Sender: FDA-Public Use
  Company Number: None

PATIENT
  Age: 40 Year
  Sex: Female
  Weight: 62.55 kg

DRUGS (1)
  1. DEPO-PROVERA [Suspect]
     Active Substance: MEDROXYPROGESTERONE ACETATE
     Indication: Contraception
     Dosage: ?          OTHER FREQUENCY:EVERY 3 MONTHS;
     Route: 058
     Dates: start: 19980403, end: 20060101

REACTIONS (8)
  - Pain in extremity [None]
  - Arthralgia [None]
  - Back pain [None]
  - Arthralgia [None]
  - Arthralgia [None]
  - Gait inability [None]
  - Osteoarthritis [None]
  - Osteoarthritis [None]

NARRATIVE: CASE EVENT DATE: 20210917
